FAERS Safety Report 19482489 (Version 1)
Quarter: 2021Q3

REPORT INFORMATION
  Report Type: Spontaneous
  Country: FR (occurrence: FR)
  Receive Date: 20210701
  Receipt Date: 20210701
  Transmission Date: 20211014
  Serious: Yes (Other)
  Sender: FDA-Public Use
  Company Number: FR-US-PROVELL PHARMACEUTICALS LLC-9247329

PATIENT
  Age: 69 Year
  Sex: Female

DRUGS (5)
  1. PROPRANOLOL [Concomitant]
     Active Substance: PROPRANOLOL HYDROCHLORIDE
     Indication: EXTRASYSTOLES
  2. LEVOTHYROX 100 [Suspect]
     Active Substance: LEVOTHYROXINE SODIUM
     Dosage: NEW FORMULATION
     Dates: start: 201703
  3. LEVOTHYROX 100 [Suspect]
     Active Substance: LEVOTHYROXINE SODIUM
     Dates: end: 2017
  4. LEVOTHYROX 100 [Suspect]
     Active Substance: LEVOTHYROXINE SODIUM
     Indication: AUTOIMMUNE THYROIDITIS
     Dosage: OLD FORMULATION
     Dates: end: 201703
  5. PRAVASTATIN. [Concomitant]
     Active Substance: PRAVASTATIN
     Indication: PRODUCT USED FOR UNKNOWN INDICATION

REACTIONS (25)
  - Dyspnoea [Unknown]
  - Mouth cyst [Unknown]
  - Fatigue [Unknown]
  - Liver function test increased [Unknown]
  - Loss of personal independence in daily activities [Unknown]
  - Dry skin [Unknown]
  - Cyst [Unknown]
  - Knee arthroplasty [Unknown]
  - Migraine [Recovered/Resolved]
  - Depression [Unknown]
  - Vision blurred [Unknown]
  - Tinnitus [Unknown]
  - Swollen tongue [Unknown]
  - Blindness [Unknown]
  - Musculoskeletal stiffness [Unknown]
  - Urinary tract infection [Unknown]
  - Balance disorder [Unknown]
  - Pruritus [Unknown]
  - Bone pain [Recovered/Resolved]
  - Weight increased [Recovering/Resolving]
  - Alopecia [Unknown]
  - Dizziness [Unknown]
  - Osteoporosis [Recovered/Resolved]
  - Somnolence [Unknown]
  - Thirst [Unknown]

NARRATIVE: CASE EVENT DATE: 2017
